FAERS Safety Report 7069729-3 (Version None)
Quarter: 2010Q4

REPORT INFORMATION
  Report Type: 
  Country: None (occurrence: None)
  Receive Date: 20101028
  Receipt Date: 20100511
  Transmission Date: 20110411
  Serious: Yes (Death)
  Sender: FDA-Public Use
  Company Number: US-WYE-H15092310

PATIENT
  Sex: Female
  Weight: 61.74 kg

DRUGS (2)
  1. EFFEXOR [Suspect]
     Indication: SEASONAL AFFECTIVE DISORDER
     Dosage: 37.5 MG DAILY INCREASED TO 112.5 MG DAILY ON UNKNOWN DATE
     Route: 048
     Dates: start: 20020101, end: 20081028
  2. EFFEXOR XR [Suspect]
     Indication: SEASONAL AFFECTIVE DISORDER
     Dosage: 75 MG IN THE MORNING AND 75 MG IN THE EVENING
     Route: 048
     Dates: start: 20081029

REACTIONS (1)
  - COMPLETED SUICIDE [None]
